FAERS Safety Report 17973995 (Version 1)
Quarter: 2020Q3

REPORT INFORMATION
  Report Type: Spontaneous
  Country: JP (occurrence: JP)
  Receive Date: 20200702
  Receipt Date: 20200702
  Transmission Date: 20201103
  Serious: Yes (Hospitalization, Other)
  Sender: FDA-Public Use
  Company Number: JP-JNJFOC-20200638136

PATIENT
  Age: 64 Year
  Sex: Male

DRUGS (4)
  1. INVEGA [Concomitant]
     Active Substance: PALIPERIDONE
     Indication: SCHIZOPHRENIA
     Route: 048
  2. HIRNAMIN                           /00038601/ [Concomitant]
     Active Substance: LEVOMEPROMAZINE
     Route: 065
  3. SERENACE [Concomitant]
     Active Substance: HALOPERIDOL
     Route: 065
  4. RISPERDAL [Suspect]
     Active Substance: RISPERIDONE
     Indication: SCHIZOPHRENIA
     Route: 048

REACTIONS (5)
  - Overdose [Unknown]
  - Treatment noncompliance [Unknown]
  - Hallucination, auditory [Unknown]
  - Neuroleptic malignant syndrome [Recovering/Resolving]
  - Hospitalisation [Unknown]
